FAERS Safety Report 19938281 (Version 5)
Quarter: 2022Q1

REPORT INFORMATION
  Report Type: Report from Study
  Country: US (occurrence: US)
  Receive Date: 20211011
  Receipt Date: 20220111
  Transmission Date: 20220423
  Serious: Yes (Hospitalization)
  Sender: FDA-Public Use
  Company Number: US-ALNYLAM PHARMACEUTICALS, INC.-ALN-2021-002459

PATIENT

DRUGS (7)
  1. GIVLAARI [Suspect]
     Active Substance: GIVOSIRAN SODIUM
     Indication: Porphyria acute
     Dosage: 162.75 MILLIGRAM (0.86 MILLILITER), MONTHLY
     Route: 058
     Dates: start: 202005
  2. GABAPENTIN [Suspect]
     Active Substance: GABAPENTIN
     Indication: Neuropathy peripheral
  3. ADDERALL [Concomitant]
     Active Substance: AMPHETAMINE ASPARTATE\AMPHETAMINE SULFATE\DEXTROAMPHETAMINE SACCHARATE\DEXTROAMPHETAMINE SULFATE
     Indication: Product used for unknown indication
     Dosage: 30 MILLIGRAM, BID
     Route: 065
  4. VICODIN [Concomitant]
     Active Substance: ACETAMINOPHEN\HYDROCODONE BITARTRATE
     Indication: Product used for unknown indication
     Dosage: UNK, Q4H
     Route: 065
  5. LOSARTAN POTASSIUM [Concomitant]
     Active Substance: LOSARTAN POTASSIUM
     Indication: Product used for unknown indication
     Dosage: 100 MILLIGRAM
     Route: 065
  6. CLONIDINE HYDROCHLORIDE [Concomitant]
     Active Substance: CLONIDINE HYDROCHLORIDE
     Indication: Product used for unknown indication
     Dosage: 0.2 MILLIGRAM TABLET
     Route: 065
  7. EPINEPHRINE [Concomitant]
     Active Substance: EPINEPHRINE
     Indication: Product used for unknown indication
     Route: 065

REACTIONS (29)
  - Porphyria acute [Unknown]
  - Hallucination [Unknown]
  - Hallucination, auditory [Unknown]
  - Somnolence [Unknown]
  - Pain [Unknown]
  - Malaise [Unknown]
  - Hypersensitivity [Unknown]
  - Oxygen saturation decreased [Unknown]
  - Peripheral swelling [Unknown]
  - Joint swelling [Unknown]
  - Hypertension [Unknown]
  - Gait disturbance [Unknown]
  - Fall [Unknown]
  - Epistaxis [Unknown]
  - Cerumen impaction [Unknown]
  - Liver function test abnormal [Unknown]
  - Renal function test abnormal [Unknown]
  - Pain in extremity [Unknown]
  - Inflammation [Unknown]
  - Neuropathy peripheral [Unknown]
  - Anxiety [Unknown]
  - Injection site pruritus [Unknown]
  - Weight increased [Unknown]
  - Fluid retention [Unknown]
  - Insomnia [Unknown]
  - Depression [Unknown]
  - Abnormal dreams [Unknown]
  - Suicidal ideation [Unknown]
  - Product dose omission issue [Unknown]
